FAERS Safety Report 12579185 (Version 1)
Quarter: 2016Q3

REPORT INFORMATION
  Report Type: Report from Study
  Country: DE (occurrence: DE)
  Receive Date: 20160721
  Receipt Date: 20160721
  Transmission Date: 20161109
  Serious: Yes (Death)
  Sender: FDA-Public Use
  Company Number: DE-CELGENEUS-062-21880-14070017

PATIENT

DRUGS (1)
  1. REVLIMID [Suspect]
     Active Substance: LENALIDOMIDE
     Indication: CHRONIC LYMPHOCYTIC LEUKAEMIA
     Route: 048

REACTIONS (11)
  - Toxicity to various agents [Unknown]
  - Haematotoxicity [Unknown]
  - Unevaluable event [Unknown]
  - Infection [Unknown]
  - Dermatitis allergic [Unknown]
  - Adverse event [Unknown]
  - Skin disorder [Unknown]
  - Fatigue [Unknown]
  - Death [Fatal]
  - Chronic lymphocytic leukaemia recurrent [Unknown]
  - Gastrointestinal disorder [Unknown]
